FAERS Safety Report 18645418 (Version 1)
Quarter: 2020Q4

REPORT INFORMATION
  Report Type: Spontaneous
  Country: GB (occurrence: GB)
  Receive Date: 20201222
  Receipt Date: 20201222
  Transmission Date: 20210114
  Serious: Yes (Other)
  Sender: FDA-Public Use
  Company Number: GB-AMGEN-GBRSP2020204868

PATIENT
  Age: 83 Year
  Sex: Female

DRUGS (1)
  1. PROLIA [Suspect]
     Active Substance: DENOSUMAB
     Indication: OSTEOPOROSIS
     Dosage: UNK, Q6MO
     Route: 065
     Dates: start: 202001

REACTIONS (10)
  - Balance disorder [Unknown]
  - Cerebrovascular accident [Unknown]
  - Injection site pain [Unknown]
  - Cystitis [Unknown]
  - Weight decreased [Unknown]
  - Pain in extremity [Unknown]
  - Feeling abnormal [Unknown]
  - Hypertension [Unknown]
  - Paraesthesia [Unknown]
  - Hypersensitivity [Unknown]

NARRATIVE: CASE EVENT DATE: 2020
